FAERS Safety Report 7771046 (Version 7)
Quarter: 2013Q1

REPORT INFORMATION
  Report Type: Spontaneous
  Country: US (occurrence: US)
  Receive Date: 20110124
  Receipt Date: 20130114
  Transmission Date: 20140127
  Serious: Yes (Hospitalization, Other)
  Sender: FDA-Public Use
  Company Number: US-ASTRAZENECA-2010SE60675

PATIENT
  Age: 83 Year
  Sex: Female
  Weight: 81.2 kg

DRUGS (13)
  1. NEXIUM [Suspect]
     Route: 048
  2. NEXIUM [Suspect]
     Route: 048
  3. VICODIN [Concomitant]
     Dosage: 5/500
     Route: 048
  4. CELEBREX [Concomitant]
     Route: 048
  5. DETROL LA [Concomitant]
     Route: 048
  6. K TAB [Concomitant]
     Route: 048
  7. LYRICA [Concomitant]
     Route: 048
  8. SOMA [Concomitant]
     Dosage: 350 MG NIGHTLY AS NEEDED
     Route: 048
  9. SYNTHROID [Concomitant]
     Route: 048
  10. OMEGA 3 [Concomitant]
     Route: 048
  11. GLUCOSAMINE CHONDROITIN [Concomitant]
     Dosage: TWICE A DAY
     Route: 048
  12. VITAMIN E [Concomitant]
     Dosage: EVERY MORNING
     Route: 048
  13. VITAMIN D [Concomitant]
     Dosage: EVERY MORNING
     Route: 048

REACTIONS (61)
  - Urge incontinence [Unknown]
  - Urethral caruncle [Unknown]
  - Vulvovaginal human papilloma virus infection [Unknown]
  - Cervical dysplasia [Unknown]
  - Spinal column stenosis [Unknown]
  - Urethral stenosis [Unknown]
  - Colon adenoma [Unknown]
  - Migraine with aura [Unknown]
  - Mental status changes [Unknown]
  - Craniocerebral injury [Unknown]
  - Contusion [Unknown]
  - Pulmonary mass [Unknown]
  - Gastrooesophageal reflux disease [Unknown]
  - Cough [Unknown]
  - Asthma [Unknown]
  - Bronchitis [Unknown]
  - Haemoptysis [Unknown]
  - Dyspepsia [Unknown]
  - Influenza [Unknown]
  - Confusional state [Unknown]
  - Muscular weakness [Unknown]
  - Arthralgia [Unknown]
  - Arthralgia [Unknown]
  - Drug dose omission [Unknown]
  - Off label use [Unknown]
  - Osteoarthritis [Unknown]
  - Concussion [Unknown]
  - Fall [Unknown]
  - Tendon rupture [Unknown]
  - Muscle rupture [Unknown]
  - Cardiac disorder [Unknown]
  - Transient ischaemic attack [Unknown]
  - Hypertension [Unknown]
  - Intervertebral disc degeneration [Unknown]
  - Herpes zoster [Unknown]
  - Flank pain [Unknown]
  - Neuroma [Unknown]
  - Chest pain [Unknown]
  - Loss of consciousness [Unknown]
  - Cerebrovascular accident [Unknown]
  - Myocardial infarction [Unknown]
  - Gastrointestinal haemorrhage [Unknown]
  - Haemorrhagic anaemia [Unknown]
  - Ulcer haemorrhage [Unknown]
  - Arthralgia [Unknown]
  - Vertigo [Unknown]
  - Paraesthesia [Unknown]
  - Headache [Unknown]
  - Liver function test abnormal [Unknown]
  - Back injury [Unknown]
  - Limb discomfort [Unknown]
  - Postoperative respiratory distress [Unknown]
  - Paronychia [Unknown]
  - Groin pain [Unknown]
  - Complex regional pain syndrome [Unknown]
  - Urinary tract infection [Unknown]
  - Aortic valve incompetence [Unknown]
  - Mitral valve incompetence [Unknown]
  - Tricuspid valve incompetence [Unknown]
  - Dyspnoea [Unknown]
  - Cystitis [Unknown]
